FAERS Safety Report 6213641-6 (Version None)
Quarter: 2009Q2

REPORT INFORMATION
  Report Type: 
  Country: None (occurrence: None)
  Receive Date: 20090603
  Receipt Date: 20090528
  Transmission Date: 20091009
  Serious: Yes (Other)
  Sender: FDA-Public Use
  Company Number: JP-ABBOTT-09P-087-0576353-00

PATIENT
  Age: 32 Year
  Sex: Female

DRUGS (1)
  1. FERO-GRADUMET TABLETS [Suspect]
     Indication: ANAEMIA
     Route: 048
     Dates: start: 20090522

REACTIONS (2)
  - MENORRHAGIA [None]
  - MENSTRUATION DELAYED [None]
